FAERS Safety Report 24575601 (Version 1)
Quarter: 2024Q4

REPORT INFORMATION
  Report Type: Spontaneous
  Country: US (occurrence: None)
  Receive Date: 20241101
  Receipt Date: 20241101
  Transmission Date: 20250115
  Serious: Yes (Hospitalization)
  Sender: Public
  Company Number: None

PATIENT
  Age: 69 Year
  Sex: Male

DRUGS (1)
  1. ADALIMUMAB [Suspect]
     Active Substance: ADALIMUMAB
     Indication: Ankylosing spondylitis

REACTIONS (5)
  - Sepsis [None]
  - Urinary tract infection [None]
  - Systemic inflammatory response syndrome [None]
  - Respiratory tract infection [None]
  - Dehydration [None]

NARRATIVE: CASE EVENT DATE: 20240717
